FAERS Safety Report 7470869-5 (Version None)
Quarter: 2011Q2

REPORT INFORMATION
  Report Type: 
  Country: None (occurrence: None)
  Receive Date: 20110510
  Receipt Date: 20110505
  Transmission Date: 20111010
  Serious: Yes (Life-Threatening, Hospitalization)
  Sender: FDA-Public Use
  Company Number: FR-PFIZER INC-2011096517

PATIENT
  Age: 72 Year
  Sex: Male

DRUGS (22)
  1. CAMPTOSAR [Suspect]
     Indication: COLON CANCER
     Dosage: 1 DF, EVERY 2 WEEKS (4 COURSES)
     Route: 042
     Dates: start: 20091230, end: 20100210
  2. LEUCOVORIN CALCIUM [Suspect]
     Indication: COLON CANCER
     Dosage: 1 DF, EVERY 2 WEEKS (32 COURSES)
     Route: 042
     Dates: start: 20080505, end: 20091209
  3. LEUCOVORIN CALCIUM [Suspect]
     Dosage: 1 DF, EVERY 2 WEEKS (4 COURSES)
     Route: 042
     Dates: start: 20100317, end: 20100428
  4. AVASTIN [Suspect]
     Indication: COLON CANCER
     Dosage: 1 DF, EVERY 2 WEEKS (3 COURSES)
     Route: 042
     Dates: start: 20101117, end: 20101222
  5. FLUOROURACIL [Suspect]
     Dosage: 1 DF, EVERY 2 WEEKS (4 COURSES)
     Route: 042
     Dates: start: 20091230, end: 20100210
  6. LEUCOVORIN CALCIUM [Suspect]
     Dosage: 1 DF, EVERY 2 WEEKS (3 COURSES)
     Route: 042
     Dates: start: 20101117, end: 20101222
  7. IKOREL [Concomitant]
     Dosage: 10 MG, 2X/DAY
  8. CAMPTOSAR [Suspect]
     Dosage: 1 DF, EVERY 2 WEEKS (3 COURSES)
     Route: 042
     Dates: start: 20101117, end: 20101222
  9. TRANDOLAPRIL [Concomitant]
     Dosage: 0.5 MG, 1X/DAY
  10. ERBITUX [Suspect]
     Indication: COLON CANCER
     Dosage: 3 COURSES
     Route: 042
     Dates: start: 20100608, end: 20100713
  11. FLUOROURACIL [Suspect]
     Dosage: 1 DF, EVERY 2 WEEKS (4 COURSES)
     Route: 042
     Dates: start: 20100317, end: 20100428
  12. FLUOROURACIL [Suspect]
     Dosage: 1 DF, EVERY 2 WEEKS (3 COURSES)
     Route: 042
     Dates: start: 20101117, end: 20101222
  13. PLAVIX [Concomitant]
     Dosage: 75 MG, 1X/DAY
  14. ATORVASTATIN CALCIUM [Concomitant]
     Dosage: 10 MG, 1X/DAY
  15. XELODA [Concomitant]
     Indication: COLON CANCER
     Dosage: 2 COURSES
     Dates: start: 20100813, end: 20100924
  16. CAMPTOSAR [Suspect]
     Dosage: 1 DF, EVERY 2 WEEKS (3 COURSES)
     Route: 042
     Dates: start: 20100608, end: 20100713
  17. FLUOROURACIL [Suspect]
     Indication: COLON CANCER
     Dosage: 1 DF, EVERY 2 WEEKS (32 COURSES)
     Route: 042
     Dates: start: 20080505, end: 20091209
  18. MITOMYCIN [Suspect]
     Indication: COLON CANCER
     Dosage: 2 COURSES
     Route: 042
     Dates: start: 20100813, end: 20100924
  19. LASIX [Concomitant]
     Dosage: 40 MG, 1X/DAY
  20. LEUCOVORIN CALCIUM [Suspect]
     Dosage: 1 DF, EVERY 2 WEEKS (4 COURSES)
     Route: 042
     Dates: start: 20091230, end: 20100210
  21. ELOXATIN [Suspect]
     Indication: COLON CANCER
     Dosage: UNK
     Route: 042
     Dates: start: 20100317, end: 20100428
  22. METFORMIN [Concomitant]
     Dosage: 1000 MG, 2X/DAY

REACTIONS (3)
  - HYPOTENSION [None]
  - CARDIAC FAILURE [None]
  - DIARRHOEA [None]
